FAERS Safety Report 24382873 (Version 1)
Quarter: 2024Q4

REPORT INFORMATION
  Report Type: Spontaneous
  Country: ID (occurrence: ID)
  Receive Date: 20241001
  Receipt Date: 20241001
  Transmission Date: 20250115
  Serious: Yes (Other)
  Sender: BAYER
  Company Number: ID-BAYER-2024A136407

PATIENT
  Age: 71 Year

DRUGS (1)
  1. FINERENONE [Suspect]
     Active Substance: FINERENONE
     Indication: Diabetic nephropathy
     Dosage: 10 MG

REACTIONS (1)
  - Urine albumin/creatinine ratio increased [Not Recovered/Not Resolved]
